FAERS Safety Report 9422983 (Version 1)
Quarter: 2013Q3

REPORT INFORMATION
  Report Type: Spontaneous
  Country: CA (occurrence: None)
  Receive Date: 20130717
  Receipt Date: 20130717
  Transmission Date: 20140515
  Serious: Yes (Other)
  Sender: FDA-Public Use
  Company Number: 2013035975

PATIENT
  Age: 62 Year
  Sex: Female

DRUGS (3)
  1. PRIVIGEN (IMMUNE GLOBULIN INTRAVENOUS (HUMAN) 10% LIQUID) [Suspect]
     Indication: HAEMOLYSIS
     Dosage: TOTAL??(NOT OTHERWISE SPECIFIED)
     Route: 042
     Dates: start: 20130507, end: 20130507
  2. PRIVIGEN (IMMUNE GLOBULIN INTRAVENOUS (HUMAN) 10% LIQUID) [Suspect]
     Indication: PURPURA
     Dosage: TOTAL??(NOT OTHERWISE SPECIFIED)
     Route: 042
     Dates: start: 20130507, end: 20130507
  3. AGGRENOX [Suspect]

REACTIONS (8)
  - Febrile nonhaemolytic transfusion reaction [None]
  - Blood pressure increased [None]
  - Tachycardia [None]
  - Chills [None]
  - Nausea [None]
  - Hypoxia [None]
  - Malaise [None]
  - Hyperhidrosis [None]
